FAERS Safety Report 5766434-8 (Version None)
Quarter: 2008Q2

REPORT INFORMATION
  Report Type: 
  Country: None (occurrence: None)
  Receive Date: 20080611
  Receipt Date: 20080515
  Transmission Date: 20081010
  Serious: No
  Sender: FDA-Public Use
  Company Number: US-BOEHRINGER INGELHEIM GMBH, GERMANY-2008-BP-05173BP

PATIENT
  Age: 75 Year
  Sex: Male

DRUGS (2)
  1. SPIRIVA [Suspect]
     Indication: DYSPNOEA EXERTIONAL
     Dosage: 1 PUFF DAILY
     Route: 055
     Dates: start: 20080201, end: 20080401
  2. SPIRIVA [Suspect]
     Indication: DYSPNOEA

REACTIONS (3)
  - BLOOD PRESSURE INCREASED [None]
  - HEART RATE INCREASED [None]
  - PALPITATIONS [None]
